FAERS Safety Report 6161892-1 (Version None)
Quarter: 2009Q2

REPORT INFORMATION
  Report Type: 
  Country: None (occurrence: None)
  Receive Date: 20090421
  Receipt Date: 20090414
  Transmission Date: 20091009
  Serious: Yes (Other)
  Sender: FDA-Public Use
  Company Number: B0569674A

PATIENT
  Sex: Male

DRUGS (3)
  1. SERETIDE [Suspect]
     Indication: ASTHMA
     Dosage: 250MCG TWICE PER DAY
     Route: 055
     Dates: start: 20080710
  2. THEO-DUR [Suspect]
     Indication: ASTHMA
     Dosage: 400MG PER DAY
     Route: 048
     Dates: start: 20080712, end: 20080901
  3. KIPRES [Concomitant]
     Indication: ASTHMA
     Route: 048
     Dates: start: 20080712

REACTIONS (2)
  - DYSGEUSIA [None]
  - PAROSMIA [None]
